FAERS Safety Report 5840817-X (Version None)
Quarter: 2008Q3

REPORT INFORMATION
  Report Type: 
  Country: None (occurrence: None)
  Receive Date: 20080811
  Receipt Date: 20080806
  Transmission Date: 20090109
  Serious: Yes (Death, Hospitalization)
  Sender: FDA-Public Use
  Company Number: DE-BOEHRINGER INGELHEIM GMBH, GERMANY-2008-DE-04644DE

PATIENT
  Sex: Female

DRUGS (5)
  1. SIFROL [Suspect]
     Indication: PARKINSON'S DISEASE
     Route: 048
     Dates: end: 20080520
  2. SIFROL [Suspect]
     Route: 048
  3. EXELON [Concomitant]
  4. MADOPAR [Concomitant]
  5. LEVOCOMP [Concomitant]

REACTIONS (3)
  - ALTERED STATE OF CONSCIOUSNESS [None]
  - CARDIAC DEATH [None]
  - CONFUSIONAL STATE [None]
